FAERS Safety Report 23319360 (Version 1)
Quarter: 2023Q4

REPORT INFORMATION
  Report Type: Spontaneous
  Country: US (occurrence: US)
  Receive Date: 20231220
  Receipt Date: 20231220
  Transmission Date: 20240110
  Serious: No
  Sender: FDA-Public Use
  Company Number: US-Accord-377609

PATIENT
  Weight: 74.4 kg

DRUGS (2)
  1. BUPROPION HYDROCHLORIDE [Suspect]
     Active Substance: BUPROPION HYDROCHLORIDE
     Indication: Product used for unknown indication
     Dosage: EXTENDED-RELEASE TABLETS?DOSE: 300 MG DAILY
     Route: 065
  2. CRESTOR [Concomitant]
     Active Substance: ROSUVASTATIN CALCIUM

REACTIONS (7)
  - Anxiety [Unknown]
  - Feeling jittery [Unknown]
  - Insomnia [Unknown]
  - Product dose omission issue [Unknown]
  - Product odour abnormal [Unknown]
  - Agitation [Unknown]
  - Product taste abnormal [Unknown]
